FAERS Safety Report 14853221 (Version 4)
Quarter: 2018Q4

REPORT INFORMATION
  Report Type: Report from Study
  Country: GB (occurrence: GB)
  Receive Date: 20180507
  Receipt Date: 20181015
  Transmission Date: 20190204
  Serious: Yes (Other)
  Sender: FDA-Public Use
  Company Number: GB-PFIZER INC-2018178466

PATIENT
  Age: 5 Year
  Sex: Male
  Weight: 27.2 kg

DRUGS (12)
  1. HYDROCORTISONE BUTYRATE. [Interacting]
     Active Substance: HYDROCORTISONE BUTYRATE
     Dosage: UNK
  2. MOVICOL [Concomitant]
     Active Substance: POLYETHYLENE GLYCOL 3350\POTASSIUM CHLORIDE\SODIUM BICARBONATE\SODIUM CHLORIDE
     Dosage: UNK
  3. CARBAMAZEPIN [Concomitant]
     Active Substance: CARBAMAZEPINE
     Dosage: UNK
  4. OMNITROPE [Interacting]
     Active Substance: SOMATROPIN
     Dosage: 0.5 MG, 1X/DAY
     Route: 058
  5. AMILORIDE [Concomitant]
     Active Substance: AMILORIDE
     Dosage: UNK
  6. OMNITROPE [Interacting]
     Active Substance: SOMATROPIN
     Indication: GROWTH HORMONE DEFICIENCY
     Dosage: 0.5 MG, 1X/DAY
     Route: 058
     Dates: start: 20180228
  7. OMNITROPE [Interacting]
     Active Substance: SOMATROPIN
     Dosage: 0.4 MG, 1X/DAY
     Route: 058
     Dates: start: 20180307
  8. KEPPRA [Concomitant]
     Active Substance: LEVETIRACETAM
     Dosage: UNK
  9. GABAPENTIN. [Suspect]
     Active Substance: GABAPENTIN
     Dosage: UNK
  10. LEVOTHYROXINE. [Interacting]
     Active Substance: LEVOTHYROXINE
     Dosage: UNK
  11. CLOBAZAM. [Concomitant]
     Active Substance: CLOBAZAM
     Dosage: UNK
  12. OMNITROPE [Interacting]
     Active Substance: SOMATROPIN
     Dosage: 0.7 MG, 1X/DAY
     Route: 058
     Dates: start: 20180307

REACTIONS (10)
  - Sleep apnoea syndrome [Unknown]
  - Tachycardia [Unknown]
  - Oxygen saturation decreased [Unknown]
  - Arthralgia [Unknown]
  - Drug interaction [Unknown]
  - Hypersomnia [Unknown]
  - Headache [Unknown]
  - Drug level increased [Unknown]
  - Pain in extremity [Unknown]
  - Neck pain [Unknown]
